FAERS Safety Report 6516807-0 (Version None)
Quarter: 2009Q4

REPORT INFORMATION
  Report Type: 
  Country: None (occurrence: None)
  Receive Date: 20091223
  Receipt Date: 20091222
  Transmission Date: 20100525
  Serious: Yes (Other)
  Sender: FDA-Public Use
  Company Number: DE-WYE-G05203409

PATIENT
  Sex: Male

DRUGS (1)
  1. REFACTO [Suspect]
     Dosage: REGULAR DOSE 1000 IU PER DAY, TEMPORARILY INCREASED TO 3X 8000 IU PER DAY
     Route: 042
     Dates: start: 20011001, end: 20060222

REACTIONS (3)
  - DRUG INEFFECTIVE [None]
  - FACTOR VIII INHIBITION [None]
  - HAEMORRHAGE [None]
